FAERS Safety Report 4794498-7 (Version None)
Quarter: 2005Q4

REPORT INFORMATION
  Report Type: 
  Country: None (occurrence: None)
  Receive Date: 20051011
  Receipt Date: 20050812
  Transmission Date: 20060501
  Serious: Yes (Death, Other)
  Sender: FDA-Public Use
  Company Number: JP-BRISTOL-MYERS SQUIBB COMPANY-13074190

PATIENT
  Age: 55 Year
  Sex: Female

DRUGS (3)
  1. TAXOL [Suspect]
     Indication: GASTRIC CANCER
     Route: 042
     Dates: start: 20050628, end: 20050628
  2. RANDA [Suspect]
     Indication: GASTRIC CANCER
     Route: 042
     Dates: start: 20050621, end: 20050621
  3. TS-1 [Suspect]
     Indication: GASTRIC CANCER
     Route: 048
     Dates: start: 20050621, end: 20050625

REACTIONS (3)
  - GRANULOCYTOPENIA [None]
  - PLATELET COUNT DECREASED [None]
  - SEPTIC SHOCK [None]
